FAERS Safety Report 7959786-1 (Version None)
Quarter: 2011Q4

REPORT INFORMATION
  Report Type: 
  Country: None (occurrence: None)
  Receive Date: 20111206
  Receipt Date: 20111129
  Transmission Date: 20120403
  Serious: Yes (Hospitalization, Other)
  Sender: FDA-Public Use
  Company Number: US-JNJFOC-20110605201

PATIENT
  Sex: Male
  Weight: 83.46 kg

DRUGS (9)
  1. CARBIDOPA [Concomitant]
     Indication: PARKINSON'S DISEASE
     Dosage: 50/200, } 2YRS
     Route: 065
  2. RISPERDAL [Suspect]
     Indication: PRODUCT USED FOR UNKNOWN INDICATION
     Route: 048
     Dates: start: 20100305, end: 20100309
  3. CHEMOTHERAPY,  NOS [Concomitant]
     Indication: LEUKAEMIA
     Route: 065
  4. ROBINUL [Concomitant]
     Indication: PARKINSON'S DISEASE
     Route: 065
  5. XANAX [Concomitant]
     Indication: ANXIETY
     Dosage: }2YRS
     Route: 065
  6. PREDNISONE TAB [Concomitant]
     Route: 048
  7. LEVODOPA [Concomitant]
     Indication: PARKINSON'S DISEASE
     Dosage: 25/100, }2YRS
     Route: 065
  8. ROBINUL [Concomitant]
     Indication: RESTLESS LEGS SYNDROME
     Route: 065
  9. SYNTHROID [Concomitant]
     Indication: HYPOTHYROIDISM
     Dosage: }2YRS
     Route: 065

REACTIONS (8)
  - TARDIVE DYSKINESIA [None]
  - PARALYSIS [None]
  - LOCKED-IN SYNDROME [None]
  - HALLUCINATION [None]
  - DYSTONIA [None]
  - TREMOR [None]
  - DRUG DISPENSING ERROR [None]
  - NIGHTMARE [None]
